FAERS Safety Report 16969219 (Version 3)
Quarter: 2020Q3

REPORT INFORMATION
  Report Type: Spontaneous
  Country: US (occurrence: US)
  Receive Date: 20191029
  Receipt Date: 20200807
  Transmission Date: 20201102
  Serious: Yes (Other)
  Sender: FDA-Public Use
  Company Number: US-BAYER-2019-193121

PATIENT
  Age: 25 Year
  Sex: Female
  Weight: 51.25 kg

DRUGS (1)
  1. MIRENA [Suspect]
     Active Substance: LEVONORGESTREL
     Indication: CONTRACEPTION
     Dosage: 20 MCG/24HR, CONT
     Route: 015
     Dates: start: 20150826, end: 20191021

REACTIONS (5)
  - Drug ineffective [None]
  - Pregnancy with contraceptive device [Recovered/Resolved]
  - Procedural pain [None]
  - Malaise [None]
  - Abortion spontaneous [None]

NARRATIVE: CASE EVENT DATE: 20191021
